FAERS Safety Report 8850704 (Version 2)
Quarter: 2013Q1

REPORT INFORMATION
  Report Type: Spontaneous
  Country: FR (occurrence: FR)
  Receive Date: 20121019
  Receipt Date: 20130208
  Transmission Date: 20140127
  Serious: Yes (Other)
  Sender: FDA-Public Use
  Company Number: FR-JNJFOC-20121009270

PATIENT
  Sex: 0

DRUGS (8)
  1. REMICADE [Suspect]
     Indication: COLITIS ULCERATIVE
     Dosage: ON DAYS 0, 14 AND 42
     Route: 042
  2. CORTICOSTEROIDS [Concomitant]
     Indication: COLITIS ULCERATIVE
     Route: 042
  3. METHYLPREDNISOLONE [Concomitant]
     Indication: COLITIS ULCERATIVE
     Dosage: DURATION: 1 WEEK
     Route: 048
  4. METHYLPREDNISOLONE [Concomitant]
     Indication: COLITIS ULCERATIVE
     Dosage: DURATION 1 WEEK
     Route: 048
  5. METHYLPREDNISOLONE [Concomitant]
     Indication: COLITIS ULCERATIVE
     Dosage: DURATION 1 WEEK
     Route: 048
  6. METHYLPREDNISOLONE [Concomitant]
     Indication: COLITIS ULCERATIVE
     Dosage: DURATION: 1 WEEK
     Route: 048
  7. METHYLPREDNISOLONE [Concomitant]
     Indication: COLITIS ULCERATIVE
     Dosage: DURATION 1 WEEK
     Route: 048
  8. AZATHIOPRINE [Concomitant]
     Indication: COLITIS ULCERATIVE
     Dosage: DOSE: 2 TP 2.5 MG/KG
     Route: 065

REACTIONS (1)
  - Cytomegalovirus colitis [Unknown]
